FAERS Safety Report 16941672 (Version 1)
Quarter: 2019Q4

REPORT INFORMATION
  Report Type: Spontaneous
  Country: US (occurrence: US)
  Receive Date: 20191020
  Receipt Date: 20191020
  Transmission Date: 20200122
  Serious: Yes (Death, Hospitalization)
  Sender: FDA-Public Use
  Company Number: None

PATIENT
  Age: 90 Year
  Sex: Female
  Weight: 71.1 kg

DRUGS (1)
  1. NUPLAZID [Suspect]
     Active Substance: PIMAVANSERIN TARTRATE
     Indication: HALLUCINATION
     Dosage: ?          QUANTITY:1 CAPSULE(S);?
     Route: 048
     Dates: start: 20190925, end: 20190929

REACTIONS (10)
  - Anaemia [None]
  - Oedema peripheral [None]
  - Asthenia [None]
  - Pallor [None]
  - Gait inability [None]
  - Confusional state [None]
  - Renal failure [None]
  - Peripheral swelling [None]
  - Malaise [None]
  - Mobility decreased [None]

NARRATIVE: CASE EVENT DATE: 20191016
